FAERS Safety Report 4562688-4 (Version None)
Quarter: 2005Q1

REPORT INFORMATION
  Report Type: 
  Country: None (occurrence: None)
  Receive Date: 20050124
  Receipt Date: 20050112
  Transmission Date: 20050727
  Serious: Yes (Hospitalization, Other)
  Sender: FDA-Public Use
  Company Number: 200415107BCC

PATIENT
  Age: 57 Year
  Sex: Female
  Weight: 74.8435 kg

DRUGS (12)
  1. ALEVE (CAPLET) [Suspect]
     Indication: NASOPHARYNGITIS
     Dosage: 220 MG, ONCE, ORAL
     Route: 048
     Dates: start: 20041016
  2. BEXTRA [Suspect]
     Dosage: QD, ORAL
     Route: 048
     Dates: start: 20040801, end: 20041016
  3. LIPITOR [Concomitant]
  4. LOTENSIN HCT [Concomitant]
  5. XANAX [Concomitant]
  6. ASPIRIN [Concomitant]
  7. PREMPRO [Concomitant]
  8. CALCIUM WITH VITAMIN D [Concomitant]
  9. POTASSIUM CHLORIDE [Concomitant]
  10. PLAVIX [Concomitant]
  11. FOLIC ACID [Concomitant]
  12. NITROGLYCERIN [Concomitant]

REACTIONS (2)
  - MYOCARDIAL INFARCTION [None]
  - TREMOR [None]
